FAERS Safety Report 7705134-1 (Version None)
Quarter: 2011Q3

REPORT INFORMATION
  Report Type: 
  Country: None (occurrence: None)
  Receive Date: 20110824
  Receipt Date: 20110816
  Transmission Date: 20111222
  Serious: Yes (Hospitalization)
  Sender: FDA-Public Use
  Company Number: US-BIOGENIDEC-2011BI028614

PATIENT
  Age: 42 Year
  Sex: Male

DRUGS (3)
  1. LOPERAMIDE HCL [Concomitant]
     Indication: DIARRHOEA
  2. TYSABRI [Suspect]
     Indication: CROHN'S DISEASE
     Route: 042
     Dates: start: 20101111, end: 20110606
  3. OXYCODONE HCL [Concomitant]
     Indication: PAIN

REACTIONS (1)
  - CROHN'S DISEASE [None]
